FAERS Safety Report 4919782-5 (Version None)
Quarter: 2006Q1

REPORT INFORMATION
  Report Type: 
  Country: None (occurrence: None)
  Receive Date: 20060216
  Receipt Date: 20060117
  Transmission Date: 20060701
  Serious: Yes (Death, Hospitalization, Other)
  Sender: FDA-Public Use
  Company Number: MAG-2005-0000421

PATIENT
  Age: 73 Year
  Sex: Male

DRUGS (7)
  1. OXYCODONE HCL [Suspect]
     Indication: CANCER PAIN
     Dosage: SEE IMAGE
     Route: 048
     Dates: start: 20050708, end: 20050713
  2. OXYCODONE HCL [Suspect]
     Indication: CANCER PAIN
     Dosage: SEE IMAGE
     Route: 048
     Dates: start: 20050722, end: 20050806
  3. OXYCODONE HCL [Suspect]
     Indication: CANCER PAIN
     Dosage: SEE IMAGE
     Route: 048
     Dates: start: 20050807, end: 20050817
  4. VOLTAREN-SLOW RELEASE ^NOVARTIS^ (DICLOFENAC SODIUM) [Concomitant]
  5. ISALON (ALDIOXA) [Concomitant]
  6. MAGNESIUM OXIDE [Concomitant]
  7. SIGMART (NICORANDIL) [Concomitant]

REACTIONS (4)
  - CARDIAC FAILURE [None]
  - MALIGNANT NEOPLASM PROGRESSION [None]
  - MYOCARDIAL INFARCTION [None]
  - VOMITING [None]
